FAERS Safety Report 18599294 (Version 2)
Quarter: 2021Q1

REPORT INFORMATION
  Report Type: Spontaneous
  Country: US (occurrence: US)
  Receive Date: 20201210
  Receipt Date: 20210120
  Transmission Date: 20210419
  Serious: Yes (Hospitalization)
  Sender: FDA-Public Use
  Company Number: NVSC2020US321641

PATIENT
  Age: 10 Year
  Sex: Female

DRUGS (1)
  1. ILARIS [Suspect]
     Active Substance: CANAKINUMAB
     Indication: PFAPA SYNDROME
     Dosage: 150 MG, EVERY 4 WEEKS
     Route: 058
     Dates: start: 20190817, end: 20201107

REACTIONS (1)
  - Large intestine infection [Recovered/Resolved]

NARRATIVE: CASE EVENT DATE: 20201128
